FAERS Safety Report 18183119 (Version 1)
Quarter: 2020Q3

REPORT INFORMATION
  Report Type: Spontaneous
  Country: JP (occurrence: JP)
  Receive Date: 20200821
  Receipt Date: 20200821
  Transmission Date: 20201103
  Serious: Yes (Hospitalization, Other)
  Sender: FDA-Public Use
  Company Number: JP-009507513-2008JPN009731

PATIENT
  Age: 75 Year
  Sex: Female

DRUGS (8)
  1. RIFAMPIN. [Suspect]
     Active Substance: RIFAMPIN
     Indication: TUBERCULOUS PLEURISY
     Dosage: 3 DF, UNK
     Route: 048
     Dates: start: 20140304, end: 20140319
  2. ACYCLOVIR. [Suspect]
     Active Substance: ACYCLOVIR
     Indication: MENINGITIS
     Dosage: 1500 GRAM
     Route: 065
     Dates: start: 20140304, end: 20140311
  3. MEROPEN [Suspect]
     Active Substance: MEROPENEM
     Indication: MENINGITIS
     Dosage: 3 G, UNK
     Route: 065
     Dates: start: 20140304, end: 20140319
  4. ISCOTIN [Suspect]
     Active Substance: ISONIAZID
     Indication: TUBERCULOUS PLEURISY
     Dosage: 300 MG, UNK
     Route: 048
     Dates: start: 20140304, end: 20140319
  5. PYRAMIDE [Suspect]
     Active Substance: PYRAZINAMIDE
     Indication: TUBERCULOUS PLEURISY
     Dosage: 1.5 MG, UNK
     Route: 048
     Dates: start: 20140311, end: 20140319
  6. JANUVIA [Suspect]
     Active Substance: SITAGLIPTIN PHOSPHATE
     Dosage: 50 MG, UNK
     Route: 048
     Dates: start: 20140313, end: 20140319
  7. ESANBUTOL [Suspect]
     Active Substance: ETHAMBUTOL HYDROCHLORIDE
     Indication: TUBERCULOUS PLEURISY
     Dosage: 750 MG, UNK
     Route: 048
     Dates: start: 20140304, end: 20140319
  8. AMARYL [Suspect]
     Active Substance: GLIMEPIRIDE
     Indication: DIABETES MELLITUS
     Dosage: 1 G, UNK
     Dates: start: 20140315, end: 20140319

REACTIONS (5)
  - Body temperature increased [Unknown]
  - Blister [Unknown]
  - Erythema [Unknown]
  - Toxic epidermal necrolysis [Recovered/Resolved]
  - Rash [Recovered/Resolved]

NARRATIVE: CASE EVENT DATE: 20140318
